FAERS Safety Report 23549654 (Version 1)
Quarter: 2024Q1

REPORT INFORMATION
  Report Type: Report from Study
  Country: FR (occurrence: FR)
  Receive Date: 20240221
  Receipt Date: 20240221
  Transmission Date: 20240410
  Serious: Yes (Other)
  Sender: FDA-Public Use
  Company Number: FR-ALNYLAM PHARMACEUTICALS, INC.-ALN-2024-000991

PATIENT

DRUGS (1)
  1. ONPATTRO [Suspect]
     Active Substance: PATISIRAN SODIUM
     Indication: Product used for unknown indication
     Dosage: UNK
     Route: 065

REACTIONS (11)
  - Cataract [Unknown]
  - Drug effect less than expected [Unknown]
  - General physical health deterioration [Unknown]
  - Balance disorder [Unknown]
  - Muscle spasms [Unknown]
  - Fine motor skill dysfunction [Unknown]
  - Fatigue [Unknown]
  - Musculoskeletal stiffness [Unknown]
  - Eye haemorrhage [Unknown]
  - Constipation [Recovered/Resolved]
  - Vitreous disorder [Unknown]
